FAERS Safety Report 9345616 (Version 2)
Quarter: 2013Q3

REPORT INFORMATION
  Report Type: Report from Study
  Country: CA (occurrence: CA)
  Receive Date: 20130613
  Receipt Date: 20130827
  Transmission Date: 20140515
  Serious: Yes (Death)
  Sender: FDA-Public Use
  Company Number: CA-ROCHE-1236215

PATIENT
  Sex: Female
  Weight: 58.5 kg

DRUGS (5)
  1. ACTEMRA [Suspect]
     Indication: RHEUMATOID ARTHRITIS
     Route: 042
     Dates: start: 20100726, end: 201302
  2. DILTIAZEM [Concomitant]
  3. CARBOCAL [Concomitant]
  4. SYMBICORT [Concomitant]
  5. ALENDRONATE [Concomitant]

REACTIONS (1)
  - Lung carcinoma cell type unspecified recurrent [Fatal]
